FAERS Safety Report 5961836-9 (Version None)
Quarter: 2008Q4

REPORT INFORMATION
  Report Type: 
  Country: None (occurrence: None)
  Receive Date: 20081121
  Receipt Date: 20080130
  Transmission Date: 20090506
  Serious: No
  Sender: FDA-Public Use
  Company Number: US-BRISTOL-MYERS SQUIBB COMPANY-14061097

PATIENT
  Sex: Female

DRUGS (1)
  1. AVALIDE [Suspect]
     Indication: BLOOD PRESSURE INCREASED
     Dosage: 1 DOSAGE FORM = 150MG/12.5MG.
     Route: 048

REACTIONS (1)
  - RASH [None]
